FAERS Safety Report 14602893 (Version 1)
Quarter: 2018Q1

REPORT INFORMATION
  Report Type: Spontaneous
  Country: US (occurrence: US)
  Receive Date: 20180304
  Receipt Date: 20180304
  Transmission Date: 20180509
  Serious: Yes (Hospitalization)
  Sender: FDA-Public Use
  Company Number: None

PATIENT
  Age: 68 Year
  Sex: Female
  Weight: 87 kg

DRUGS (17)
  1. CYCLOPHOSPHAMIDE. [Suspect]
     Active Substance: CYCLOPHOSPHAMIDE
     Dates: end: 20180207
  2. DAUNORUBICIN [Suspect]
     Active Substance: DAUNORUBICIN
     Dates: end: 20180103
  3. CYTARABINE. [Suspect]
     Active Substance: CYTARABINE
     Dates: end: 20180217
  4. ACYCLOVIR. [Concomitant]
     Active Substance: ACYCLOVIR
  5. ONDANSETRON [Concomitant]
     Active Substance: ONDANSETRON
  6. DAPSONE. [Concomitant]
     Active Substance: DAPSONE
  7. VINCRISTINE SULFATE. [Suspect]
     Active Substance: VINCRISTINE SULFATE
     Dates: end: 20180103
  8. LEVOTHYROXINE. [Concomitant]
     Active Substance: LEVOTHYROXINE
  9. PANTOPRAZOLE [Concomitant]
     Active Substance: PANTOPRAZOLE
  10. MERCAPTOPURINE. [Suspect]
     Active Substance: MERCAPTOPURINE
     Dates: end: 20180220
  11. METHOTREXATE. [Suspect]
     Active Substance: METHOTREXATE
     Dates: end: 20180207
  12. FLUCONAZOLE. [Concomitant]
     Active Substance: FLUCONAZOLE
  13. CARVEDILOL. [Concomitant]
     Active Substance: CARVEDILOL
  14. POLYETHYLENE GLYCOL [Concomitant]
     Active Substance: POLYETHYLENE GLYCOLS
  15. SENNA [Concomitant]
     Active Substance: SENNA LEAF\SENNOSIDES\SENNOSIDES A AND B
  16. DEXAMETHASONE. [Suspect]
     Active Substance: DEXAMETHASONE
     Dates: end: 20171219
  17. DOCUSATE [Concomitant]
     Active Substance: DOCUSATE

REACTIONS (1)
  - Pyrexia [None]

NARRATIVE: CASE EVENT DATE: 20180221
